FAERS Safety Report 4586350-7 (Version None)
Quarter: 2005Q1

REPORT INFORMATION
  Report Type: 
  Country: None (occurrence: None)
  Receive Date: 20050125
  Receipt Date: 20040827
  Transmission Date: 20050727
  Serious: No
  Sender: FDA-Public Use
  Company Number: USA040876669

PATIENT
  Age: 43 Year
  Sex: Female
  Weight: 48 kg

DRUGS (11)
  1. FORTEO [Suspect]
     Indication: OSTEOPOROSIS
     Dosage: 20 UG/1 IN THE EVENING
     Dates: start: 20040817
  2. LIBRAX [Concomitant]
  3. VIOKASE (PANCRELIPASE) [Concomitant]
  4. MULTI-VITAMIN [Concomitant]
  5. CHROMIUM PICOLINATE [Concomitant]
  6. VITAMIN B-12 [Concomitant]
  7. VANADYL SULFATE (VANADIUM) [Concomitant]
  8. HYOSCYAMINE [Concomitant]
  9. PHENERGAN [Concomitant]
  10. TRAMADOL HCL [Concomitant]
  11. VICODIN [Concomitant]

REACTIONS (1)
  - PAIN IN EXTREMITY [None]
